FAERS Safety Report 10355216 (Version 2)
Quarter: 2014Q3

REPORT INFORMATION
  Report Type: Spontaneous
  Country: GB (occurrence: GB)
  Receive Date: 20140731
  Receipt Date: 20140910
  Transmission Date: 20150326
  Serious: Yes (Other)
  Sender: FDA-Public Use
  Company Number: GB-PFIZER INC-2014209202

PATIENT
  Age: 56 Year
  Sex: Female
  Weight: 65.8 kg

DRUGS (3)
  1. SUTENT [Suspect]
     Active Substance: SUNITINIB MALATE
     Indication: PANCREATIC NEUROENDOCRINE TUMOUR
     Dosage: 25 MG, UNK
     Route: 048
     Dates: start: 20140120, end: 201406
  2. THYROXINE [Concomitant]
     Active Substance: LEVOTHYROXINE
     Indication: HYPOTHYROIDISM
     Dosage: 75 UG, UNK
     Route: 048
     Dates: start: 201403
  3. AMLODIPINE [Concomitant]
     Active Substance: AMLODIPINE BESYLATE
     Indication: HYPERTENSION
     Dosage: 10 MG, UNK
     Route: 048
     Dates: start: 201403

REACTIONS (5)
  - Proteinuria [Recovered/Resolved]
  - Urine protein/creatinine ratio increased [Recovered/Resolved]
  - Pleural effusion [Not Recovered/Not Resolved]
  - Face oedema [Recovering/Resolving]
  - Oedema peripheral [Recovering/Resolving]
